FAERS Safety Report 6494959-9 (Version None)
Quarter: 2009Q4

REPORT INFORMATION
  Report Type: 
  Country: None (occurrence: None)
  Receive Date: 20091214
  Receipt Date: 20090414
  Transmission Date: 20100525
  Serious: No
  Sender: FDA-Public Use
  Company Number: US-BRISTOL-MYERS SQUIBB COMPANY-14587182

PATIENT
  Age: 62 Year
  Sex: Female

DRUGS (5)
  1. ABILIFY [Suspect]
     Indication: BIPOLAR DISORDER
     Dates: start: 20090224
  2. LAMICTAL [Concomitant]
  3. ZYPREXA [Concomitant]
  4. FLURAZEPAM [Concomitant]
  5. BUPROPION HCL [Concomitant]

REACTIONS (1)
  - DYSKINESIA [None]
